FAERS Safety Report 7971109-0 (Version None)
Quarter: 2011Q4

REPORT INFORMATION
  Report Type: 
  Country: None (occurrence: None)
  Receive Date: 20111212
  Receipt Date: 20111212
  Transmission Date: 20120403
  Serious: No
  Sender: FDA-Public Use
  Company Number: None

PATIENT
  Age: 35 Year
  Sex: Male
  Weight: 60.327 kg

DRUGS (1)
  1. PROPECIA [Suspect]
     Indication: ALOPECIA
     Dosage: 1MG
     Route: 048
     Dates: start: 19981017, end: 20010520

REACTIONS (8)
  - ERECTILE DYSFUNCTION [None]
  - THINKING ABNORMAL [None]
  - MOOD SWINGS [None]
  - SUICIDAL IDEATION [None]
  - MENTAL IMPAIRMENT [None]
  - EDUCATIONAL PROBLEM [None]
  - HEADACHE [None]
  - LIBIDO DECREASED [None]
